FAERS Safety Report 5011052-2 (Version None)
Quarter: 2006Q2

REPORT INFORMATION
  Report Type: 
  Country: None (occurrence: None)
  Receive Date: 20060523
  Receipt Date: 20060508
  Transmission Date: 20061013
  Serious: Yes (Hospitalization)
  Sender: FDA-Public Use
  Company Number: GXKR2006GB02026

PATIENT
  Age: 60 Year
  Sex: Female

DRUGS (7)
  1. WARFARIN SODIUM [Suspect]
     Indication: PULMONARY EMBOLISM
  2. TRIMETHOPRIM [Suspect]
     Indication: URINARY TRACT INFECTION
  3. METRONIDAZOLE [Suspect]
     Indication: URINARY TRACT INFECTION
  4. CEFALEXIN (NGX) (CEFALEXIN) [Suspect]
     Indication: URINARY TRACT INFECTION
  5. NIFEDIPINE [Concomitant]
  6. ACEBUTOLOL [Concomitant]
  7. INDAPAMIDE [Concomitant]

REACTIONS (11)
  - CONTUSION [None]
  - DEEP VEIN THROMBOSIS [None]
  - DRUG INTERACTION [None]
  - HAEMOGLOBIN S DECREASED [None]
  - HAEMORRHAGE [None]
  - HYPOVOLAEMIC SHOCK [None]
  - PAIN [None]
  - PYREXIA [None]
  - RETROPERITONEAL HAEMATOMA [None]
  - URETERIC OBSTRUCTION [None]
  - WHITE BLOOD CELL COUNT INCREASED [None]
